FAERS Safety Report 25995212 (Version 1)
Quarter: 2025Q4

REPORT INFORMATION
  Report Type: Spontaneous
  Country: EU (occurrence: EU)
  Receive Date: 20251104
  Receipt Date: 20251104
  Transmission Date: 20260117
  Serious: Yes (Life-Threatening, Hospitalization, Other)
  Sender: GLAXOSMITHKLINE
  Company Number: None

PATIENT
  Age: 72 Year
  Sex: Female
  Weight: 65 kg

DRUGS (2)
  1. ZEJULA [Suspect]
     Active Substance: NIRAPARIB
     Indication: Ovarian cancer
     Dosage: 300 MG, QD (3 TABLETS (100 MG) IN THE MORNING (3-0-0)CURRENTLY DISCONTINUED, PLAN TO RESUME ADMINISTRATION AT A REDUCED DOSE AFTER THROMBOCYTOPENIA SUBSIDES)
  2. BROMAZEPAM [Concomitant]
     Active Substance: BROMAZEPAM
     Indication: Product used for unknown indication
     Dosage: 1.5 MG AS NEEDED

REACTIONS (1)
  - Thrombocytopenia [Recovering/Resolving]

NARRATIVE: CASE EVENT DATE: 20251014
